FAERS Safety Report 13785996 (Version 1)
Quarter: 2017Q3

REPORT INFORMATION
  Report Type: Spontaneous
  Country: None (occurrence: US)
  Receive Date: 20170725
  Receipt Date: 20170725
  Transmission Date: 20171127
  Serious: Yes (Death)
  Sender: FDA-Public Use
  Company Number: None

PATIENT
  Age: 66 Year
  Sex: Male
  Weight: 97.8 kg

DRUGS (3)
  1. DEXAMETHASONE. [Suspect]
     Active Substance: DEXAMETHASONE
     Dates: end: 20170616
  2. LENALIDOMIDE (CC-5013) [Suspect]
     Active Substance: LENALIDOMIDE
     Dates: end: 20170618
  3. VELCADE [Suspect]
     Active Substance: BORTEZOMIB
     Dates: end: 20170615

REACTIONS (3)
  - Multiple organ dysfunction syndrome [None]
  - Fall [None]
  - Plasma cell myeloma [None]

NARRATIVE: CASE EVENT DATE: 20170708
